FAERS Safety Report 18856231 (Version 2)
Quarter: 2021Q1

REPORT INFORMATION
  Report Type: Other
  Country: CA (occurrence: CA)
  Receive Date: 20210207
  Receipt Date: 20210219
  Transmission Date: 20210420
  Serious: No
  Sender: FDA-Public Use
  Company Number: CA-AMARIN PHARMA, INC.-2021AMR000079

PATIENT
  Age: 30 Year
  Sex: Female
  Weight: 59 kg

DRUGS (3)
  1. CIPRALEX [Concomitant]
     Active Substance: ESCITALOPRAM OXALATE
     Indication: AFFECTIVE DISORDER
  2. VASCEPA [Suspect]
     Active Substance: ICOSAPENT ETHYL
     Route: 048
     Dates: end: 20201013
  3. VASCEPA [Suspect]
     Active Substance: ICOSAPENT ETHYL
     Indication: COVID-19
     Route: 048
     Dates: start: 20200928

REACTIONS (3)
  - Constipation [Recovered/Resolved]
  - Prescribed overdose [Recovered/Resolved]
  - Nausea [Recovered/Resolved]

NARRATIVE: CASE EVENT DATE: 20201005
